FAERS Safety Report 9539318 (Version 2)
Quarter: 2013Q4

REPORT INFORMATION
  Report Type: Spontaneous
  Country: FR (occurrence: None)
  Receive Date: 20130917
  Receipt Date: 20131018
  Transmission Date: 20140711
  Serious: Yes (Hospitalization)
  Sender: FDA-Public Use
  Company Number: 7235023

PATIENT
  Age: 65 Year
  Sex: Female

DRUGS (5)
  1. LEVOTHYROX [Suspect]
     Indication: SECONDARY HYPOTHYROIDISM
     Dosage: 1 DF (1 DF, 1 IN 1 D), ORAL
     Route: 048
  2. PRAVASTATIN SODIUM [Suspect]
     Indication: HYPERCHOLESTEROLAEMIA
     Dosage: 20 MG (20 MG, 1 D), ORAL
     Route: 048
     Dates: end: 20130719
  3. LOSARTAN POTASSIUM [Suspect]
     Indication: HYPERTENSION
     Route: 048
     Dates: end: 20130719
  4. CACIT VITAMINE D3 [Suspect]
     Dosage: 3 DF (1 DF, 3 IN 1 D), ORAL
     Route: 048
     Dates: end: 20130719
  5. LYRICA [Suspect]
     Indication: NEURALGIA
     Dosage: 2 DF (1 DF, 2 IN 1 D), ORAL?
     Route: 048

REACTIONS (5)
  - Hyponatraemia [None]
  - Hyperthyroidism [None]
  - Hypocalcaemia [None]
  - Hypoparathyroidism [None]
  - Iatrogenic injury [None]
